FAERS Safety Report 4390573-X (Version None)
Quarter: 2004Q2

REPORT INFORMATION
  Report Type: 
  Country: None (occurrence: None)
  Receive Date: 20040630
  Receipt Date: 20040618
  Transmission Date: 20050107
  Serious: Yes (Hospitalization)
  Sender: FDA-Public Use
  Company Number: S04-USA-03513-01

PATIENT
  Age: 28 Year
  Sex: Male

DRUGS (8)
  1. LEXAPRO [Suspect]
     Indication: ANXIETY
     Dosage: 10 MG QD PO
     Route: 048
     Dates: start: 20040601, end: 20040613
  2. LEXAPRO [Suspect]
     Indication: DEPRESSION
     Dosage: 10 MG QD PO
     Route: 048
     Dates: start: 20040601, end: 20040613
  3. LEXAPRO [Suspect]
     Indication: ANXIETY
     Dosage: 20 MG QD PO
     Route: 048
     Dates: start: 20040614, end: 20040616
  4. LEXAPRO [Suspect]
     Indication: DEPRESSION
     Dosage: 20 MG QD PO
     Route: 048
     Dates: start: 20040614, end: 20040616
  5. LEXAPRO [Suspect]
     Indication: ANXIETY
     Dosage: 10 MG QD PO
     Route: 048
     Dates: start: 20040617, end: 20040618
  6. LEXAPRO [Suspect]
     Indication: DEPRESSION
     Dosage: 10 MG QD PO
     Route: 048
     Dates: start: 20040617, end: 20040618
  7. RISPERDAL [Suspect]
     Indication: ANXIETY
     Dosage: 3 MG QD
     Dates: end: 20040618
  8. RISPERDAL [Suspect]
     Indication: DEPRESSION
     Dosage: 3 MG QD
     Dates: end: 20040618

REACTIONS (11)
  - BRADYCARDIA [None]
  - CONVULSION [None]
  - DECREASED APPETITE [None]
  - DEPRESSION [None]
  - DRUG INEFFECTIVE [None]
  - EMOTIONAL DISTRESS [None]
  - INSOMNIA [None]
  - NEAR DROWNING [None]
  - RESTLESSNESS [None]
  - SCHIZOAFFECTIVE DISORDER [None]
  - THINKING ABNORMAL [None]
